FAERS Safety Report 9265965 (Version 2)
Quarter: 2013Q2

REPORT INFORMATION
  Report Type: Spontaneous
  Country: US (occurrence: US)
  Receive Date: 20130501
  Receipt Date: 20130520
  Transmission Date: 20140414
  Serious: Yes (Death, Hospitalization)
  Sender: FDA-Public Use
  Company Number: US-GILEAD-2013-0074411

PATIENT
  Age: 83 Year
  Sex: Male

DRUGS (21)
  1. LETAIRIS [Suspect]
     Indication: PULMONARY HYPERTENSION
     Dosage: 10 MG, UNK
     Route: 048
     Dates: start: 201110
  2. LETAIRIS [Suspect]
     Indication: CARDIAC VALVE DISEASE
  3. LIPITOR [Concomitant]
  4. POTASSIUM CHLORIDE [Concomitant]
  5. METOPROLOL [Concomitant]
  6. COLCHICINE [Concomitant]
  7. REVATIO [Concomitant]
  8. ULORIC [Concomitant]
  9. DEMADEX                            /01036501/ [Concomitant]
  10. ZAROXOLYN [Concomitant]
  11. PROCRIT                            /00909301/ [Concomitant]
  12. OMEPRAZOLE [Concomitant]
  13. IRON SULFATE [Concomitant]
  14. ALBUTEROL                          /00139501/ [Concomitant]
  15. OXYGEN [Concomitant]
  16. ADVAIR [Concomitant]
  17. VIAGRA [Concomitant]
  18. BUMEX [Concomitant]
  19. REMERON [Concomitant]
  20. SYNTHROID [Concomitant]
  21. MAGNESIUM OXIDE [Concomitant]

REACTIONS (4)
  - Acute respiratory failure [Fatal]
  - Pulmonary hypertension [Fatal]
  - Pneumonia [Fatal]
  - Cardiac failure congestive [Fatal]
